FAERS Safety Report 7968751-X (Version None)
Quarter: 2011Q4

REPORT INFORMATION
  Report Type: 
  Country: None (occurrence: None)
  Receive Date: 20111209
  Receipt Date: 20111205
  Transmission Date: 20120403
  Serious: Yes (Death)
  Sender: FDA-Public Use
  Company Number: US-CELGENEUS-163-20785-11101666

PATIENT
  Sex: Male

DRUGS (3)
  1. THALOMID [Suspect]
     Indication: MULTIPLE MYELOMA
     Dosage: 100 MILLIGRAM
     Route: 048
     Dates: start: 20110504, end: 20110823
  2. VIDAZA [Suspect]
     Indication: MULTIPLE MYELOMA
     Route: 041
     Dates: start: 20110621, end: 20110712
  3. PREDNISONE [Concomitant]
     Dosage: 50 MILLIGRAM
     Route: 065

REACTIONS (2)
  - MULTIPLE MYELOMA [None]
  - DRUG INEFFECTIVE [None]
